FAERS Safety Report 5635445-5 (Version None)
Quarter: 2008Q1

REPORT INFORMATION
  Report Type: 
  Country: None (occurrence: None)
  Receive Date: 20080131
  Receipt Date: 20071125
  Transmission Date: 20080703
  Serious: No
  Sender: FDA-Public Use
  Company Number: US200711005766

PATIENT
  Sex: Female

DRUGS (2)
  1. BYETTA [Suspect]
     Dosage: 5 UG, SUBCUTANEOUS
     Route: 058
  2. EXENATIDE (EXENATIDE PEN) [Concomitant]

REACTIONS (4)
  - DIARRHOEA [None]
  - DIZZINESS [None]
  - FATIGUE [None]
  - NAUSEA [None]
